FAERS Safety Report 9285722 (Version 1)
Quarter: 2013Q2

REPORT INFORMATION
  Report Type: Spontaneous
  Country: CN (occurrence: CN)
  Receive Date: 20130513
  Receipt Date: 20130513
  Transmission Date: 20140414
  Serious: Yes (Hospitalization)
  Sender: FDA-Public Use
  Company Number: CN-ABBOTT-13X-035-1087983-00

PATIENT
  Age: 64 Year
  Sex: Male

DRUGS (1)
  1. DEPAKINE [Suspect]
     Indication: PROPHYLAXIS
     Route: 041
     Dates: start: 20111126, end: 20111205

REACTIONS (4)
  - Renal impairment [Not Recovered/Not Resolved]
  - Renal impairment [Unknown]
  - Hypernatraemia [Unknown]
  - Blood glucose increased [Not Recovered/Not Resolved]
